FAERS Safety Report 8716477 (Version 2)
Quarter: 2014Q3

REPORT INFORMATION
  Report Type: Spontaneous
  Country: US (occurrence: US)
  Receive Date: 20120810
  Receipt Date: 20140828
  Transmission Date: 20150326
  Serious: Yes (Hospitalization)
  Sender: FDA-Public Use
  Company Number: US-009507513-2009SP017678

PATIENT
  Sex: Female
  Weight: 63.5 kg

DRUGS (5)
  1. OMEGA-3 MARINE TRIGLYCERIDES [Concomitant]
     Active Substance: FISH OIL
     Indication: PRODUCT USED FOR UNKNOWN INDICATION
     Dates: start: 2005
  2. NUVARING [Suspect]
     Active Substance: ETHINYL ESTRADIOL\ETONOGESTREL
     Indication: MENSTRUAL CYCLE MANAGEMENT
  3. SYNTHROID [Concomitant]
     Active Substance: LEVOTHYROXINE SODIUM
     Indication: THYROID DISORDER
     Dosage: 150 MG, QD
     Dates: start: 1975
  4. NUVARING [Suspect]
     Active Substance: ETHINYL ESTRADIOL\ETONOGESTREL
     Indication: MENSTRUAL CYCLE MANAGEMENT
     Dosage: 1 DF, QM
     Route: 067
     Dates: start: 20050603, end: 200507
  5. PREVACID [Concomitant]
     Active Substance: LANSOPRAZOLE
     Indication: GASTROOESOPHAGEAL REFLUX DISEASE
     Dosage: UNK UNK, PRN

REACTIONS (14)
  - Uterine leiomyoma [Not Recovered/Not Resolved]
  - Tendonitis [Unknown]
  - Pain in extremity [Unknown]
  - Off label use [Unknown]
  - Seasonal allergy [Unknown]
  - Chest pain [Unknown]
  - Deep vein thrombosis [Recovered/Resolved]
  - Skin ulcer [Unknown]
  - Hypercoagulation [Unknown]
  - Breast mass [Unknown]
  - Hypercholesterolaemia [Unknown]
  - Pain [Unknown]
  - Headache [Unknown]
  - Oedema peripheral [Unknown]

NARRATIVE: CASE EVENT DATE: 200507
